FAERS Safety Report 6353566-9 (Version None)
Quarter: 2009Q3

REPORT INFORMATION
  Report Type: 
  Country: None (occurrence: None)
  Receive Date: 20090912
  Receipt Date: 20090622
  Transmission Date: 20100115
  Serious: No
  Sender: FDA-Public Use
  Company Number: US-ABBOTT-08P-163-0460841-00

PATIENT
  Sex: Female
  Weight: 72.64 kg

DRUGS (11)
  1. HUMIRA [Suspect]
     Indication: RHEUMATOID ARTHRITIS
     Route: 050
     Dates: start: 20070901
  2. PREDNISONE [Concomitant]
     Indication: INFLAMMATION
     Route: 048
  3. NAPROXEN [Concomitant]
     Indication: PAIN
     Route: 048
  4. FOLIC ACID [Concomitant]
     Indication: FOLATE DEFICIENCY
     Route: 048
  5. ARAVA [Concomitant]
     Indication: RHEUMATOID ARTHRITIS
     Route: 048
  6. PLAQUENIL [Concomitant]
     Indication: RHEUMATOID ARTHRITIS
     Dosage: 200MG Q AM; 100MG Q HS
     Route: 048
  7. ELAVIL [Concomitant]
     Indication: DRUG USE FOR UNKNOWN INDICATION
     Route: 048
  8. MICRO-K [Concomitant]
     Indication: MUSCLE SPASMS
     Route: 048
  9. BIRTH CONTROL [Concomitant]
     Indication: DRUG USE FOR UNKNOWN INDICATION
     Route: 048
  10. LEUKOVORIN [Concomitant]
     Indication: RHEUMATOID ARTHRITIS
     Dosage: Q MONDAY
     Route: 048
  11. METHOTREXATE [Concomitant]
     Indication: RHEUMATOID ARTHRITIS
     Dosage: 3 PILLS BID Q WEEK
     Route: 048

REACTIONS (4)
  - DRUG DELIVERY SYSTEM MALFUNCTION [None]
  - INCORRECT DOSE ADMINISTERED [None]
  - INJECTION SITE PAIN [None]
  - SKIN REACTION [None]
